FAERS Safety Report 8537253-4 (Version None)
Quarter: 2012Q3

REPORT INFORMATION
  Report Type: 
  Country: None (occurrence: None)
  Receive Date: 20120725
  Receipt Date: 20120719
  Transmission Date: 20120928
  Serious: No
  Sender: FDA-Public Use
  Company Number: US-PFIZER INC-2012174618

PATIENT
  Sex: Male
  Weight: 141.4 kg

DRUGS (2)
  1. VIAGRA [Suspect]
     Indication: ERECTILE DYSFUNCTION
     Dosage: 75 MG, AS NEEDED
     Route: 048
     Dates: start: 20120601
  2. VISTARIL [Suspect]
     Dosage: 100 MG, UNK
     Dates: start: 20120718

REACTIONS (4)
  - DRUG DISPENSING ERROR [None]
  - SOMNOLENCE [None]
  - DIZZINESS [None]
  - ABDOMINAL DISCOMFORT [None]
